FAERS Safety Report 16336277 (Version 1)
Quarter: 2019Q2

REPORT INFORMATION
  Report Type: Spontaneous
  Country: US (occurrence: US)
  Receive Date: 20190521
  Receipt Date: 20190521
  Transmission Date: 20190711
  Serious: Yes (Hospitalization, Other)
  Sender: FDA-Public Use
  Company Number: US-ALVOGEN-2019-ALVOGEN-099811

PATIENT
  Age: 54 Year
  Sex: Female
  Weight: 66.1 kg

DRUGS (2)
  1. FENTANYL. [Suspect]
     Active Substance: FENTANYL
     Indication: PAIN
     Dosage: (25 MCG/HOUR PATCH)
  2. FENTANYL. [Suspect]
     Active Substance: FENTANYL
     Indication: PAIN
     Dosage: 75 MCG/HOUR, 2 TO 3 TIMES PER DAY

REACTIONS (3)
  - Overdose [Unknown]
  - Hypoxia [Unknown]
  - Carotid artery occlusion [Unknown]
